FAERS Safety Report 24463679 (Version 1)
Quarter: 2024Q4

REPORT INFORMATION
  Report Type: Report from Study
  Country: US (occurrence: US)
  Receive Date: 20241018
  Receipt Date: 20241018
  Transmission Date: 20250114
  Serious: No
  Sender: ROCHE
  Company Number: US-ROCHE-3439867

PATIENT
  Age: 55 Year
  Sex: Female
  Weight: 92.99 kg

DRUGS (6)
  1. XOLAIR [Suspect]
     Active Substance: OMALIZUMAB
     Indication: Urticaria
     Dosage: ANTICIPATED DATE OF TREATMENT; 11/5/2023, EVERY 1 MONTHS
     Route: 058
     Dates: start: 20231010, end: 20231011
  2. XOLAIR [Suspect]
     Active Substance: OMALIZUMAB
  3. TRULICITY [Concomitant]
     Active Substance: DULAGLUTIDE
     Indication: Diabetes mellitus
     Route: 058
     Dates: start: 2023
  4. LANTUS [Concomitant]
     Active Substance: INSULIN GLARGINE
     Indication: Diabetes mellitus
     Dosage: 20-30 UNITS MORNING AND NIGHT
     Route: 058
     Dates: start: 2023
  5. SPIRONOLACTONE [Concomitant]
     Active Substance: SPIRONOLACTONE
     Indication: Blood pressure measurement
     Dosage: MORNING AND NIGHT
     Route: 048
  6. AMLODIPINE [Concomitant]
     Active Substance: AMLODIPINE BESYLATE
     Indication: Blood pressure measurement
     Dosage: MORNING
     Route: 048
     Dates: start: 202308

REACTIONS (8)
  - Dizziness [Recovered/Resolved]
  - Chest discomfort [Recovered/Resolved]
  - Rhinorrhoea [Recovered/Resolved]
  - Hypotension [Recovered/Resolved]
  - Nervousness [Unknown]
  - Nausea [Unknown]
  - Hyperhidrosis [Unknown]
  - Drug hypersensitivity [Unknown]

NARRATIVE: CASE EVENT DATE: 20231011
